FAERS Safety Report 5221264-0 (Version None)
Quarter: 2007Q1

REPORT INFORMATION
  Report Type: 
  Country: None (occurrence: None)
  Receive Date: 20070126
  Receipt Date: 20070115
  Transmission Date: 20070707
  Serious: Yes (Death, Life-Threatening, Hospitalization)
  Sender: FDA-Public Use
  Company Number: DE-ROCHE-468352

PATIENT
  Age: 47 Year
  Sex: Female

DRUGS (5)
  1. MYCOPHENOLATE MOFETIL [Suspect]
     Route: 048
     Dates: start: 20061008
  2. MYCOPHENOLATE MOFETIL [Suspect]
     Route: 048
     Dates: end: 20061031
  3. FK506 [Suspect]
     Route: 048
     Dates: start: 20061008, end: 20061023
  4. FK506 [Suspect]
     Route: 048
     Dates: end: 20061031
  5. HYDROCORTISON [Concomitant]

REACTIONS (9)
  - ABDOMINAL ABSCESS [None]
  - BLOOD BILIRUBIN INCREASED [None]
  - LARGE INTESTINE PERFORATION [None]
  - MULTI-ORGAN FAILURE [None]
  - PERITONITIS [None]
  - RENAL FAILURE ACUTE [None]
  - SEPSIS [None]
  - SHOCK HAEMORRHAGIC [None]
  - THROMBOCYTOPENIA [None]
